FAERS Safety Report 13795240 (Version 1)
Quarter: 2017Q3

REPORT INFORMATION
  Report Type: Spontaneous
  Country: US (occurrence: US)
  Receive Date: 20170726
  Receipt Date: 20170726
  Transmission Date: 20171127
  Serious: No
  Sender: FDA-Public Use
  Company Number: US-NEUROCRINE BIOSCIENCES INC.-2017NBI00375

PATIENT
  Age: 49 Year
  Sex: Female
  Weight: 83.54 kg

DRUGS (26)
  1. ZOVIRAX 5% OINTMENT [Concomitant]
     Dosage: AS NEEDED
  2. FUROSEMIDE. [Concomitant]
     Active Substance: FUROSEMIDE
  3. GABAPENTIN. [Concomitant]
     Active Substance: GABAPENTIN
     Dosage: ONE AND A HALF TABLET THREE TIMES DAILY
  4. HYDROXYZINE [Concomitant]
     Active Substance: HYDROXYZINE HYDROCHLORIDE
     Dosage: AS NEEDED
  5. OXYCONTIN [Concomitant]
     Active Substance: OXYCODONE HYDROCHLORIDE
  6. PATADAY [Concomitant]
     Active Substance: OLOPATADINE HYDROCHLORIDE
     Dosage: AS NEEDED
  7. ZOFRAN [Concomitant]
     Active Substance: ONDANSETRON HYDROCHLORIDE
     Dosage: AS NEEDED
  8. LORAZEPAM. [Concomitant]
     Active Substance: LORAZEPAM
     Dosage: AS NEEDED BUT NOT MORE THAN TWO IN ONE DAY
  9. BETHANECHOL [Concomitant]
     Active Substance: BETHANECHOL
  10. ESTRADIOL. [Concomitant]
     Active Substance: ESTRADIOL
     Dosage: INSERT TWICE WEEKLY
  11. LINZESS [Concomitant]
     Active Substance: LINACLOTIDE
  12. TRAZODONE [Concomitant]
     Active Substance: TRAZODONE HYDROCHLORIDE
     Dosage: ONE TO TWO TABLETS NIGHTLY
  13. ALBUTEROL INHALER [Concomitant]
     Active Substance: ALBUTEROL
     Dosage: 2 PUFFS, EVERY 4 TO 6 HOURS AS NEEDED
  14. CLOTRIMAZOLE AND BETAMETHASONE DIPROPIONATE [Concomitant]
     Active Substance: BETAMETHASONE\BETAMETHASONE DIPROPIONATE\CLOTRIMAZOLE
     Dosage: AS NEEDED
  15. RANITIDINE. [Concomitant]
     Active Substance: RANITIDINE
  16. DICYCLOMINE [Concomitant]
     Active Substance: DICYCLOMINE HYDROCHLORIDE
  17. ZOFRAN ODT [Concomitant]
     Active Substance: ONDANSETRON HYDROCHLORIDE
     Dosage: AS NEEDED
  18. BACLOFEN. [Concomitant]
     Active Substance: BACLOFEN
     Dosage: TWO TABLETS
  19. LAMOTRIGINE. [Concomitant]
     Active Substance: LAMOTRIGINE
     Dosage: CAN INCREASE BY ONE TABLET EVERY TWO WEEKS UNTIL SHE REACHES FOUR TABLETS DAILY. CURRENT DOSE UNKNOW
  20. LIDOCAINE. [Concomitant]
     Active Substance: LIDOCAINE
  21. INGREZZA [Suspect]
     Active Substance: VALBENAZINE
     Indication: TARDIVE DYSKINESIA
     Route: 048
     Dates: start: 20170620, end: 20170626
  22. CELEBREX [Concomitant]
     Active Substance: CELECOXIB
  23. LOPREEZA [Concomitant]
     Active Substance: ESTRADIOL\NORETHINDRONE ACETATE
     Dosage: 0.5-0.1MG DAILY
  24. PROTONIX [Concomitant]
     Active Substance: PANTOPRAZOLE SODIUM
  25. SUMATRIPTAN. [Concomitant]
     Active Substance: SUMATRIPTAN
     Dosage: ONE TABLET AT ONSET OF HEADACHE (MAY REPEAT IN TWO HOURS AS NEEDED, DO NOT EXCEED TWO TABLETS A DAY
  26. VOLTAREN [Concomitant]
     Active Substance: DICLOFENAC SODIUM
     Dosage: AS NEEDED

REACTIONS (1)
  - Dyskinesia [Recovered/Resolved]

NARRATIVE: CASE EVENT DATE: 20170623
